FAERS Safety Report 10176289 (Version 1)
Quarter: 2014Q2

REPORT INFORMATION
  Report Type: Spontaneous
  Country: US (occurrence: US)
  Receive Date: 20140516
  Receipt Date: 20140516
  Transmission Date: 20141212
  Serious: No
  Sender: FDA-Public Use
  Company Number: US-PFIZER INC-2014134171

PATIENT
  Age: 66 Year
  Sex: Female

DRUGS (4)
  1. XALATAN [Suspect]
     Dosage: UNK
     Route: 047
     Dates: start: 201304
  2. XALATAN [Suspect]
     Dosage: UNK
  3. AMOXICILLIN [Concomitant]
     Dosage: UNK
  4. VALACYCLOVIR [Concomitant]
     Dosage: UNK

REACTIONS (1)
  - Eye irritation [Unknown]
